FAERS Safety Report 16184689 (Version 2)
Quarter: 2019Q2

REPORT INFORMATION
  Report Type: Report from Study
  Country: IT (occurrence: IT)
  Receive Date: 20190411
  Receipt Date: 20190430
  Transmission Date: 20190711
  Serious: Yes (Death, Hospitalization)
  Sender: FDA-Public Use
  Company Number: IT-TEVA-2019-IT-1035147

PATIENT
  Age: 63 Year
  Sex: Male

DRUGS (3)
  1. GEMCITABINE [Suspect]
     Active Substance: GEMCITABINE\GEMCITABINE HYDROCHLORIDE
     Indication: LUNG ADENOCARCINOMA STAGE III
     Route: 065
  2. GEMCITABINE [Suspect]
     Active Substance: GEMCITABINE\GEMCITABINE HYDROCHLORIDE
     Dosage: 1 DOSE OF GEMCITABIN EVERY 21 DAYS AS A MAINTENANCE THERAPY
     Route: 065
  3. CISPLATINUM [Suspect]
     Active Substance: CISPLATIN
     Indication: LUNG ADENOCARCINOMA STAGE III
     Route: 065

REACTIONS (4)
  - Respiratory failure [Fatal]
  - Interstitial lung disease [Fatal]
  - Pulmonary fibrosis [Fatal]
  - Condition aggravated [Fatal]

NARRATIVE: CASE EVENT DATE: 2016
